FAERS Safety Report 23634880 (Version 1)
Quarter: 2024Q1

REPORT INFORMATION
  Report Type: Spontaneous
  Country: US (occurrence: None)
  Receive Date: 20240315
  Receipt Date: 20240315
  Transmission Date: 20240410
  Serious: Yes (Other)
  Sender: FDA-Public Use
  Company Number: 2024A058144

PATIENT
  Sex: Female

DRUGS (2)
  1. BREZTRI [Suspect]
     Active Substance: BUDESONIDE\FORMOTEROL\GLYCOPYRROLATE
     Dosage: UNKNOWN
     Route: 055
  2. SYMBICORT [Suspect]
     Active Substance: BUDESONIDE\FORMOTEROL FUMARATE DIHYDRATE
     Route: 055

REACTIONS (15)
  - Lung disorder [Unknown]
  - Oxygen saturation decreased [Unknown]
  - Emphysema [Unknown]
  - Cough [Unknown]
  - Suspected product quality issue [Unknown]
  - Productive cough [Unknown]
  - Fear [Unknown]
  - Increased bronchial secretion [Unknown]
  - Anxiety [Unknown]
  - Palpitations [Unknown]
  - Dyspnoea [Unknown]
  - Oral candidiasis [Unknown]
  - Condition aggravated [Unknown]
  - Drug ineffective [Unknown]
  - Product dose omission in error [Unknown]
